FAERS Safety Report 6847629-9 (Version None)
Quarter: 2010Q3

REPORT INFORMATION
  Report Type: 
  Country: None (occurrence: None)
  Receive Date: 20100716
  Receipt Date: 20100702
  Transmission Date: 20110219
  Serious: Yes (Other)
  Sender: FDA-Public Use
  Company Number: PHHY2010DE44637

PATIENT
  Sex: Male
  Weight: 62 kg

DRUGS (7)
  1. ALISKIREN ALI+ [Suspect]
     Indication: HYPERTENSION
     Dosage: 300 MG/ DAY
     Dates: start: 20081204
  2. TELMISARTAN [Concomitant]
     Dosage: 12.5/80 MG
     Dates: start: 20081204
  3. FELOCOR [Concomitant]
     Dosage: 5 MG/DAY
     Dates: start: 20081204
  4. RAMIPRIL [Concomitant]
     Dosage: 5 MG/DAY
     Dates: start: 20081204
  5. EBRANTIL [Concomitant]
     Dosage: 60 MG/DAY
     Dates: start: 20081204
  6. ANTIPLATELET [Concomitant]
  7. STATINE [Concomitant]

REACTIONS (2)
  - DYSPNOEA [None]
  - PERCUTANEOUS CORONARY INTERVENTION [None]
